FAERS Safety Report 25478413 (Version 4)
Quarter: 2025Q3

REPORT INFORMATION
  Report Type: Spontaneous
  Country: US (occurrence: US)
  Receive Date: 20250625
  Receipt Date: 20250904
  Transmission Date: 20251021
  Serious: No
  Sender: BRISTOL-MYERS SQUIBB COMPANY
  Company Number: US-BRISTOL-MYERS SQUIBB COMPANY-2025-090331

PATIENT
  Age: 73 Year
  Sex: Female

DRUGS (3)
  1. POMALYST [Suspect]
     Active Substance: POMALIDOMIDE
     Indication: Plasma cell myeloma
     Route: 048
  2. POMALYST [Suspect]
     Active Substance: POMALIDOMIDE
  3. POMALYST [Suspect]
     Active Substance: POMALIDOMIDE
     Route: 048

REACTIONS (6)
  - Fatigue [Unknown]
  - Diarrhoea [Recovered/Resolved]
  - Retching [Recovered/Resolved]
  - Rash [Recovering/Resolving]
  - Oedema peripheral [Unknown]
  - Dyspnoea [Unknown]
